FAERS Safety Report 24954178 (Version 1)
Quarter: 2025Q1

REPORT INFORMATION
  Report Type: Report from Study
  Country: US (occurrence: US)
  Receive Date: 20250211
  Receipt Date: 20250211
  Transmission Date: 20250409
  Serious: Yes (Other)
  Sender: ALEXION PHARMACEUTICALS
  Company Number: US-AstraZeneca-CH-00800307A

PATIENT
  Weight: 129.48 kg

DRUGS (1)
  1. CAPIVASERTIB [Suspect]
     Active Substance: CAPIVASERTIB
     Indication: Breast cancer female
     Dosage: 400 MILLIGRAM, BID

REACTIONS (4)
  - Diverticulitis [Unknown]
  - Tumour marker increased [Unknown]
  - Diarrhoea [Unknown]
  - Rash [Recovered/Resolved]
